FAERS Safety Report 19161764 (Version 1)
Quarter: 2021Q2

REPORT INFORMATION
  Report Type: Spontaneous
  Country: US (occurrence: US)
  Receive Date: 20210420
  Receipt Date: 20210420
  Transmission Date: 20210717
  Serious: No
  Sender: FDA-Public Use
  Company Number: None

PATIENT
  Age: 95 Year
  Sex: Female
  Weight: 43.65 kg

DRUGS (6)
  1. TYLENOL [Concomitant]
     Active Substance: ACETAMINOPHEN
  2. ASPIRIN. [Concomitant]
     Active Substance: ASPIRIN
  3. LASIX [Concomitant]
     Active Substance: FUROSEMIDE
  4. IBRANCE [Suspect]
     Active Substance: PALBOCICLIB
     Indication: BREAST CANCER
     Dosage: ?          OTHER FREQUENCY:DAILY FOR 21/28D;?
     Route: 048
     Dates: start: 20201201
  5. FAMOTIDINE. [Concomitant]
     Active Substance: FAMOTIDINE
  6. CILOSTAZOL. [Concomitant]
     Active Substance: CILOSTAZOL

REACTIONS (3)
  - Decreased appetite [None]
  - Ear pain [None]
  - Dysphagia [None]

NARRATIVE: CASE EVENT DATE: 20210406
